FAERS Safety Report 9238822 (Version 1)
Quarter: 2013Q1

REPORT INFORMATION
  Report Type: Spontaneous
  Country: US (occurrence: None)
  Receive Date: 20121107
  Receipt Date: 20121107
  Transmission Date: 20140127
  Serious: No
  Sender: FDA-Public Use
  Company Number: 2012HGS-003836

PATIENT
  Age: 35 Year
  Sex: Female
  Weight: 109.32 kg

DRUGS (12)
  1. BENLYSTA [Suspect]
     Indication: SYSTEMIC LUPUS ERYTHEMATOSUS
     Dosage: 1 IN 14 D INTRAVENOUS DRIP
     Route: 041
     Dates: start: 20120621
  2. METHOTREXATE (METHOTREXATE) (METHOTREXATE) [Concomitant]
  3. PLAQUENIL (HYDROXY-CHLOROQUINE PHOSPHATE) ( HYDROXYCHLOROQUINE PHOSPHATE) [Concomitant]
  4. CELEBREX ( CELECOXIB) ( CELECOXIB) [Concomitant]
  5. PREDNISONE (PREDNISONE) (PREDNISONE) [Concomitant]
  6. TRAMADOL ( TRAMADOL) (TRAMADOL) [Concomitant]
  7. FOLIC ACID ( FOLIC ACID) ( FOLIC ACID) [Concomitant]
  8. ASPIRIN ( ACETYLSALICYLIC ACID) ( ACETYLSALICYLIC ACID) [Concomitant]
  9. VITAMIN D2 ( ERGOCALCIFEROL) ( ERGOCALCIFEROL) [Concomitant]
  10. VITAMIN D3 ( COLECALCIFEROL) ( COLECALCIFEROL) [Concomitant]
  11. RABIES VACCINE ( RABIES VACCINE) ( RABIES VACCINE) [Concomitant]
  12. ZOFRAN ( ONDANSETRON) ( ONDANSETRON) [Concomitant]

REACTIONS (6)
  - Local swelling [None]
  - Headache [None]
  - Nausea [None]
  - Infusion related reaction [None]
  - Blood pressure decreased [None]
  - Dizziness [None]
